FAERS Safety Report 21765389 (Version 2)
Quarter: 2023Q1

REPORT INFORMATION
  Report Type: Spontaneous
  Country: JP (occurrence: JP)
  Receive Date: 20221222
  Receipt Date: 20230301
  Transmission Date: 20230418
  Serious: Yes (Hospitalization, Other)
  Sender: FDA-Public Use
  Company Number: JP-Accord-292833

PATIENT
  Age: 75 Year
  Sex: Female

DRUGS (1)
  1. METHOTREXATE [Suspect]
     Active Substance: METHOTREXATE
     Indication: Rheumatoid arthritis
     Dates: start: 200708

REACTIONS (5)
  - Lymphadenitis [Recovered/Resolved]
  - Human herpesvirus 7 infection [Recovered/Resolved]
  - Cytokine storm [Recovered/Resolved]
  - Splenomegaly [Recovered/Resolved]
  - Pleurisy [Recovered/Resolved]
